FAERS Safety Report 23961502 (Version 1)
Quarter: 2024Q2

REPORT INFORMATION
  Report Type: Spontaneous
  Country: US (occurrence: None)
  Receive Date: 20240610
  Receipt Date: 20240610
  Transmission Date: 20240716
  Serious: No
  Sender: FDA-Public Use
  Company Number: None

PATIENT
  Age: 62 Year
  Sex: Male
  Weight: 145.15 kg

DRUGS (4)
  1. OTEZLA [Suspect]
     Active Substance: APREMILAST
     Indication: Psoriatic arthropathy
     Dosage: OTHER QUANTITY : TAKE 1 TABLET;?FREQUENCY : TWICE A DAY;?
     Route: 048
     Dates: start: 202202
  2. CARVEDILOL [Suspect]
     Active Substance: CARVEDILOL
  3. ELIQUIS [Suspect]
     Active Substance: APIXABAN
  4. LOSARTAN [Suspect]
     Active Substance: LOSARTAN

REACTIONS (1)
  - Endocarditis [None]
